FAERS Safety Report 26074453 (Version 1)
Quarter: 2025Q4

REPORT INFORMATION
  Report Type: Spontaneous
  Country: US (occurrence: US)
  Receive Date: 20251121
  Receipt Date: 20251121
  Transmission Date: 20260118
  Serious: No
  Sender: ASTELLAS
  Company Number: US-ASTELLAS-2025-AER-063246

PATIENT
  Age: 4 Decade

DRUGS (1)
  1. ZOLBETUXIMAB [Suspect]
     Active Substance: ZOLBETUXIMAB
     Indication: Product used for unknown indication
     Dosage: 3RD INFUSION CYCLE
     Route: 065

REACTIONS (1)
  - Nausea [Unknown]
